FAERS Safety Report 9029810 (Version 4)
Quarter: 2013Q3

REPORT INFORMATION
  Report Type: Report from Study
  Country: US (occurrence: US)
  Receive Date: 20130124
  Receipt Date: 20130723
  Transmission Date: 20140515
  Serious: Yes (Hospitalization, Other)
  Sender: FDA-Public Use
  Company Number: US-US-EMD SERONO, INC.-7189034

PATIENT
  Age: 50 Year
  Sex: Female

DRUGS (1)
  1. REBIF [Suspect]
     Indication: MULTIPLE SCLEROSIS
     Route: 058
     Dates: start: 20030623

REACTIONS (5)
  - Diverticular perforation [Recovered/Resolved]
  - Hernia [Recovered/Resolved]
  - Diverticulitis [Unknown]
  - Ovarian cyst [Recovered/Resolved]
  - Influenza like illness [Unknown]
